FAERS Safety Report 10111096 (Version 1)
Quarter: 2014Q2

REPORT INFORMATION
  Report Type: Spontaneous
  Country: US (occurrence: None)
  Receive Date: 20140424
  Receipt Date: 20140424
  Transmission Date: 20141212
  Serious: Yes (Death, Hospitalization)
  Sender: FDA-Public Use
  Company Number: None

PATIENT
  Age: 76 Year
  Sex: Female

DRUGS (14)
  1. RIVAROXABAN [Suspect]
     Indication: THROMBOSIS PROPHYLAXIS
     Route: 048
     Dates: start: 20140121, end: 20140415
  2. ASPIRIN\CLOPIDOGREL [Suspect]
     Indication: STENT PLACEMENT
  3. AMLODIPINE [Concomitant]
  4. NORCO [Concomitant]
  5. CALCIUM [Concomitant]
  6. VITAMIN D3 [Concomitant]
  7. LOVASTATIN [Concomitant]
  8. MG OXIDE [Concomitant]
  9. METOPROLOL [Concomitant]
  10. MIRALAX [Concomitant]
  11. MULTIVITAMIN [Concomitant]
  12. TEMAZEPAM [Concomitant]
  13. TRAMADOL [Concomitant]
  14. CLOPIDOGREL (PLAVIX) [Suspect]
     Indication: STENT PLACEMENT
     Dosage: 2 YEARS., 1 TAB QD, ORAL.

REACTIONS (2)
  - Cerebral haemorrhage [None]
  - Brain herniation [None]
